FAERS Safety Report 8584765-3 (Version None)
Quarter: 2012Q3

REPORT INFORMATION
  Report Type: 
  Country: None (occurrence: None)
  Receive Date: 20120810
  Receipt Date: 20120803
  Transmission Date: 20120928
  Serious: No
  Sender: FDA-Public Use
  Company Number: US-BAYER-2012-079862

PATIENT
  Age: 53 Year
  Sex: Female
  Weight: 113.38 kg

DRUGS (2)
  1. LISINOPRIL [Concomitant]
  2. ALEVE (CAPLET) [Suspect]
     Indication: PRODUCT USED FOR UNKNOWN INDICATION
     Dosage: 1 DF, UNK
     Route: 048
     Dates: start: 20110922

REACTIONS (1)
  - DRUG INEFFECTIVE [None]
